FAERS Safety Report 9862512 (Version 1)
Quarter: 2014Q1

REPORT INFORMATION
  Report Type: Report from Study
  Country: NL (occurrence: NL)
  Receive Date: 20140203
  Receipt Date: 20140203
  Transmission Date: 20141002
  Serious: Yes (Death, Other)
  Sender: FDA-Public Use
  Company Number: NL-INCYTE CORPORATION-2014IN000228

PATIENT
  Sex: Male

DRUGS (1)
  1. INC424 [Suspect]
     Indication: MYELOFIBROSIS
     Dosage: ,UNK, UNK, UNK
     Route: 065
     Dates: end: 201210

REACTIONS (2)
  - Death [Fatal]
  - Blast cell crisis [Not Recovered/Not Resolved]
